FAERS Safety Report 8665250 (Version 2)
Quarter: 2013Q2

REPORT INFORMATION
  Report Type: Spontaneous
  Country: US (occurrence: US)
  Receive Date: 20120716
  Receipt Date: 20130605
  Transmission Date: 20140414
  Serious: Yes (Hospitalization, Other)
  Sender: FDA-Public Use
  Company Number: US-ELI_LILLY_AND_COMPANY-US201207000871

PATIENT
  Age: 52 Year
  Sex: Female

DRUGS (5)
  1. HUMULIN NPH [Suspect]
     Dosage: 12 U, EACH MORNING
  2. HUMULIN NPH [Suspect]
     Dosage: 15 U, EACH EVENING
  3. HUMULIN NPH [Suspect]
     Dosage: UNK
  4. HUMULIN REGULAR [Suspect]
     Indication: DIABETES MELLITUS
     Dosage: UNK, UNKNOWN
  5. HUMALOG LISPRO [Suspect]
     Dosage: UNK, PRN

REACTIONS (11)
  - Blood glucose increased [Unknown]
  - Malaise [Unknown]
  - Dehydration [Unknown]
  - Productive cough [Unknown]
  - Oral mucosal blistering [Unknown]
  - Wheezing [Unknown]
  - Drug ineffective [Unknown]
  - Feeling abnormal [Unknown]
  - Visual impairment [Unknown]
  - Blood glucose increased [Not Recovered/Not Resolved]
  - Drug dose omission [Unknown]
